FAERS Safety Report 17749061 (Version 2)
Quarter: 2020Q2

REPORT INFORMATION
  Report Type: Spontaneous
  Country: US (occurrence: US)
  Receive Date: 20200505
  Receipt Date: 20200529
  Transmission Date: 20200714
  Serious: No
  Sender: FDA-Public Use
  Company Number: US-009507513-2005USA000466

PATIENT
  Age: 23 Year
  Sex: Female
  Weight: 84.35 kg

DRUGS (2)
  1. NEXPLANON [Suspect]
     Active Substance: ETONOGESTREL
     Indication: CONTRACEPTION
     Dosage: 1 EVERY 3 YEARS IN LEFT ARM
     Route: 059
     Dates: start: 20200318, end: 20200514
  2. NEXPLANON [Suspect]
     Active Substance: ETONOGESTREL
     Dosage: IN RIGHT ARM
     Route: 059
     Dates: start: 20200514

REACTIONS (3)
  - Pain in extremity [Recovered/Resolved]
  - Limb discomfort [Recovered/Resolved]
  - Paraesthesia [Not Recovered/Not Resolved]

NARRATIVE: CASE EVENT DATE: 20200318
